FAERS Safety Report 10067597 (Version 1)
Quarter: 2014Q2

REPORT INFORMATION
  Report Type: Spontaneous
  Country: FR (occurrence: FR)
  Receive Date: 20140409
  Receipt Date: 20140409
  Transmission Date: 20141212
  Serious: Yes (Other)
  Sender: FDA-Public Use
  Company Number: FR-JNJFOC-20140402834

PATIENT
  Age: 65 Year
  Sex: Female

DRUGS (6)
  1. REMICADE [Suspect]
     Indication: RHEUMATOID ARTHRITIS
     Dosage: 70TH INFLIXIMAB INFUSION
     Route: 042
     Dates: start: 2002, end: 20131231
  2. HYDROCORTISONE [Concomitant]
     Route: 065
  3. ATENOLOL [Concomitant]
     Route: 065
  4. FOSINOPRIL [Concomitant]
     Route: 065
  5. ALDACTONE [Concomitant]
     Route: 065
  6. ALENDRONATE [Concomitant]
     Route: 065

REACTIONS (2)
  - Eye infection toxoplasmal [Recovered/Resolved]
  - Uveitis [Recovered/Resolved]
